FAERS Safety Report 7593297-0 (Version None)
Quarter: 2011Q3

REPORT INFORMATION
  Report Type: 
  Country: None (occurrence: None)
  Receive Date: 20110706
  Receipt Date: 20101116
  Transmission Date: 20111222
  Serious: Yes (Other)
  Sender: FDA-Public Use
  Company Number: US-BAYER-2011-005583

PATIENT
  Age: 67 Year
  Sex: Female
  Weight: 99.773 kg

DRUGS (19)
  1. VITAMIN E [Concomitant]
     Dosage: 1000 / DAILY
     Route: 048
  2. FISH OIL [Concomitant]
     Route: 048
  3. VANCOMYCIN [Concomitant]
     Dosage: UNK
     Route: 042
     Dates: start: 20051109, end: 20051109
  4. GLUCOVANCE [Concomitant]
     Dosage: 5/500 TWO TABS EVERY MORNING AND 1 TAB/EVERY EVENING
     Route: 048
  5. ASPIRIN [Concomitant]
     Route: 048
  6. EPINEPHRINE [Concomitant]
     Dosage: UNK
     Route: 042
     Dates: start: 20051109, end: 20051109
  7. TRASYLOL [Suspect]
     Indication: CORONARY ARTERY BYPASS
     Dosage: 1 ML, UNK
     Route: 042
     Dates: start: 20051109, end: 20051109
  8. EFFEXOR [Concomitant]
     Dosage: 75 MG, QD
     Route: 048
  9. METOPROLOL TARTRATE [Concomitant]
     Dosage: UNK
     Route: 042
     Dates: start: 20051109, end: 20051109
  10. DOBUTAMINE HCL [Concomitant]
     Dosage: UNK
     Route: 042
     Dates: start: 20051109, end: 20051109
  11. PHENYLEPHRINE HCL [Concomitant]
     Dosage: UNK
     Route: 042
     Dates: start: 20051109, end: 20051109
  12. QUINAPRIL HCL [Concomitant]
     Dosage: 20 / DAILY
     Route: 048
  13. SOLU-MEDROL [Concomitant]
     Dosage: UNK
     Route: 042
     Dates: start: 20051109, end: 20051109
  14. MULTIVITAMIN PREPARATION + MINERAL SUPPLEMENT [Concomitant]
     Dosage: UNK UNK, QD
     Route: 048
  15. MANNITOL [Concomitant]
     Dosage: PUMP
     Dates: start: 20051109, end: 20051109
  16. FOLIC ACID [Concomitant]
     Dosage: 1 MG, QD
     Route: 048
  17. LASIX [Concomitant]
     Dosage: UNK
     Route: 042
     Dates: start: 20051109, end: 20051109
  18. INSULIN [Concomitant]
     Dosage: UNK
     Route: 042
     Dates: start: 20051109, end: 20051109
  19. RED BLOOD CELLS [Concomitant]
     Dosage: 2 UNITS PACKED

REACTIONS (15)
  - MULTI-ORGAN FAILURE [None]
  - FEAR OF DEATH [None]
  - PAIN [None]
  - DEPRESSION [None]
  - ANHEDONIA [None]
  - PSYCHIATRIC SYMPTOM [None]
  - INJURY [None]
  - UNEVALUABLE EVENT [None]
  - EMOTIONAL DISTRESS [None]
  - FEAR [None]
  - NERVOUSNESS [None]
  - ANXIETY [None]
  - RENAL FAILURE [None]
  - RENAL INJURY [None]
  - RENAL FAILURE ACUTE [None]
